FAERS Safety Report 7537308-7 (Version None)
Quarter: 2011Q2

REPORT INFORMATION
  Report Type: 
  Country: None (occurrence: None)
  Receive Date: 20110609
  Receipt Date: 20110606
  Transmission Date: 20111010
  Serious: Yes (Other)
  Sender: FDA-Public Use
  Company Number: GB-BRISTOL-MYERS SQUIBB COMPANY-15811334

PATIENT
  Age: 52 Year
  Sex: Male

DRUGS (1)
  1. ABILIFY [Suspect]
     Dosage: STARTED WITH 10MG

REACTIONS (1)
  - PSYCHOTIC DISORDER [None]
